FAERS Safety Report 10255542 (Version 1)
Quarter: 2014Q2

REPORT INFORMATION
  Report Type: Spontaneous
  Country: US (occurrence: US)
  Receive Date: 20140624
  Receipt Date: 20140624
  Transmission Date: 20141212
  Serious: No
  Sender: FDA-Public Use
  Company Number: US-PFIZER INC-2014171964

PATIENT
  Age: 56 Year
  Sex: Female
  Weight: 59 kg

DRUGS (3)
  1. ADVIL [Suspect]
     Indication: ARTHRALGIA
     Dosage: 1800 MG, DAILY
     Route: 048
  2. ZOLPIDEM [Concomitant]
     Indication: SLEEP DISORDER
     Dosage: UNK, ONCE A DAY
  3. XANAX [Concomitant]
     Dosage: UNK, AS NEEDED

REACTIONS (1)
  - Weight increased [Unknown]
